FAERS Safety Report 14417475 (Version 1)
Quarter: 2018Q1

REPORT INFORMATION
  Report Type: Spontaneous
  Country: US (occurrence: US)
  Receive Date: 20180119
  Receipt Date: 20180119
  Transmission Date: 20180509
  Serious: Yes (Hospitalization)
  Sender: FDA-Public Use
  Company Number: None

PATIENT
  Sex: Female

DRUGS (17)
  1. OXYCODONE [Concomitant]
     Active Substance: OXYCODONE
  2. YUVAFEM [Concomitant]
     Active Substance: ESTRADIOL HEMIHYDRATE
  3. VIRTUSSIN AC [Concomitant]
     Active Substance: CODEINE PHOSPHATE\GUAIFENESIN
  4. BISOPROL [Concomitant]
     Active Substance: BISOPROLOL FUMARATE
  5. ATORVASTATIN [Concomitant]
     Active Substance: ATORVASTATIN
  6. DEXMETHYLPH [Concomitant]
  7. FLUOROMETHYL [Concomitant]
  8. XALKORI [Suspect]
     Active Substance: CRIZOTINIB
     Indication: NEOPLASM MALIGNANT
     Route: 048
  9. LEVOFLOXACIN. [Concomitant]
     Active Substance: LEVOFLOXACIN
  10. FLUCONAZOLE. [Concomitant]
     Active Substance: FLUCONAZOLE
  11. VAGIFEM [Concomitant]
     Active Substance: ESTRADIOL
  12. ESTRADIOL. [Concomitant]
     Active Substance: ESTRADIOL
  13. ANASTRAZOLE [Concomitant]
     Active Substance: ANASTROZOLE
  14. GABAPENTIN. [Concomitant]
     Active Substance: GABAPENTIN
  15. PROVENTIL [Concomitant]
     Active Substance: ALBUTEROL
  16. LEVOTHYROXINE. [Concomitant]
     Active Substance: LEVOTHYROXINE
  17. AMOX/K CLAV [Concomitant]
     Active Substance: AMOXICILLIN\CLAVULANATE POTASSIUM

REACTIONS (5)
  - Cough [None]
  - Drug dose omission [None]
  - Cellulitis [None]
  - Vomiting [None]
  - Oesophageal pain [None]
